FAERS Safety Report 23614939 (Version 2)
Quarter: 2024Q2

REPORT INFORMATION
  Report Type: Other
  Country: FR (occurrence: FR)
  Receive Date: 20240311
  Receipt Date: 20240416
  Transmission Date: 20240716
  Serious: Yes (Death, Life-Threatening, Other)
  Sender: FDA-Public Use
  Company Number: FR-ELERTE-202400010

PATIENT

DRUGS (24)
  1. TRAMADOL [Interacting]
     Active Substance: TRAMADOL\TRAMADOL HYDROCHLORIDE
     Indication: Back pain
     Dosage: UNK
     Route: 065
     Dates: start: 2016, end: 2016
  2. IBUPROFEN [Suspect]
     Active Substance: IBUPROFEN
     Indication: Back pain
     Dosage: UNK
     Route: 048
     Dates: start: 2016, end: 2016
  3. KETAMINE [Suspect]
     Active Substance: KETAMINE
     Indication: Back pain
     Dosage: UNKTHERAPY START DATE: //2016 THERAPY END DATE: //2016
     Route: 065
     Dates: start: 2016, end: 2016
  4. KETAMINE [Suspect]
     Active Substance: KETAMINE
     Indication: Back pain
  5. FENTANYL [Interacting]
     Active Substance: FENTANYL\FENTANYL CITRATE
     Indication: Back pain
     Dosage: UNK
     Route: 062
     Dates: start: 2016, end: 2016
  6. CODEINE PHOSPHATE\IBUPROFEN [Suspect]
     Active Substance: CODEINE PHOSPHATE\IBUPROFEN
     Indication: Back pain
     Dosage: 1 DOSAGE FORMTHERAPY START DATE: //2016 THERAPY END DATE: //2016
     Route: 048
     Dates: start: 2016, end: 2016
  7. CODEINE PHOSPHATE\IBUPROFEN [Suspect]
     Active Substance: CODEINE PHOSPHATE\IBUPROFEN
     Indication: Back pain
  8. MIANSERIN HYDROCHLORIDE [Suspect]
     Active Substance: MIANSERIN HYDROCHLORIDE
     Indication: Back pain
     Dosage: UNK
     Route: 065
     Dates: start: 2016, end: 2016
  9. PAROXETINE MESYLATE [Suspect]
     Active Substance: PAROXETINE MESYLATE
     Indication: Back pain
     Dosage: 20 MILLIGRAM
     Route: 065
     Dates: start: 2016, end: 2016
  10. PAROXETINE MESYLATE [Suspect]
     Active Substance: PAROXETINE MESYLATE
     Dosage: UNK
     Route: 065
     Dates: start: 2016, end: 2016
  11. SKENAN [Interacting]
     Active Substance: MORPHINE SULFATE
     Indication: Back pain
     Dosage: 10 MG
     Route: 065
     Dates: start: 2016, end: 2016
  12. SKENAN [Interacting]
     Active Substance: MORPHINE SULFATE
     Dosage: 30 MG
     Route: 065
  13. CLOTIAZEPAM [Interacting]
     Active Substance: CLOTIAZEPAM
     Indication: Product used for unknown indication
     Dosage: UNK
     Route: 065
  14. CLOTIAZEPAM [Interacting]
     Active Substance: CLOTIAZEPAM
  15. VALIUM [Interacting]
     Active Substance: DIAZEPAM
     Indication: Product used for unknown indication
     Dosage: UNK
     Route: 065
  16. PRAZEPAM [Interacting]
     Active Substance: PRAZEPAM
     Indication: Product used for unknown indication
     Dosage: UNK
     Route: 065
  17. THIOCOLCHICOSIDE [Suspect]
     Active Substance: THIOCOLCHICOSIDE
     Indication: Product used for unknown indication
     Dosage: UNK
     Route: 065
  18. THIOCOLCHICOSIDE [Suspect]
     Active Substance: THIOCOLCHICOSIDE
     Indication: Product used for unknown indication
     Dosage: UNK
     Route: 065
  19. ETIFOXINE [Suspect]
     Active Substance: ETIFOXINE
     Indication: Product used for unknown indication
     Dosage: UNK
     Route: 065
  20. OXYCONTIN [Interacting]
     Active Substance: OXYCODONE HYDROCHLORIDE
     Indication: Product used for unknown indication
     Dosage: UNK
     Route: 065
  21. OXYCONTIN [Interacting]
     Active Substance: OXYCODONE HYDROCHLORIDE
     Indication: Product used for unknown indication
  22. CLOBAZAM [Interacting]
     Active Substance: CLOBAZAM
     Indication: Product used for unknown indication
     Dosage: UNK
     Route: 065
  23. ARTANE [Suspect]
     Active Substance: TRIHEXYPHENIDYL HYDROCHLORIDE
     Indication: Product used for unknown indication
     Dosage: UNK
     Route: 065
  24. QUETIAPINE FUMARATE [Suspect]
     Active Substance: QUETIAPINE FUMARATE
     Indication: Product used for unknown indication
     Dosage: UNK
     Route: 065

REACTIONS (12)
  - Cardiomyopathy [Fatal]
  - Myocarditis [Fatal]
  - Hepatitis acute [Fatal]
  - Encephalopathy [Fatal]
  - Hepatic cytolysis [Unknown]
  - Coma [Fatal]
  - Labelled drug-drug interaction issue [Fatal]
  - Myocardial infarction [Unknown]
  - Somnolence [Fatal]
  - Respiratory depression [Fatal]
  - Accidental poisoning [Fatal]
  - Overdose [Fatal]

NARRATIVE: CASE EVENT DATE: 20160101
